FAERS Safety Report 9813418 (Version 1)
Quarter: 2014Q1

REPORT INFORMATION
  Report Type: Report from Study
  Country: ES (occurrence: ES)
  Receive Date: 20140113
  Receipt Date: 20140113
  Transmission Date: 20141002
  Serious: Yes (Disabling, Other)
  Sender: FDA-Public Use
  Company Number: ES-ABBVIE-14P-144-1187006-00

PATIENT
  Age: 35 Year
  Sex: Male
  Weight: 80 kg

DRUGS (3)
  1. HUMIRA [Suspect]
     Indication: OSTEONECROSIS
     Route: 058
     Dates: start: 20140102
  2. HUMIRA [Suspect]
     Indication: OSTEONECROSIS
  3. HUMIRA [Suspect]
     Indication: OSTEONECROSIS

REACTIONS (6)
  - Hypoaesthesia [Not Recovered/Not Resolved]
  - Back pain [Not Recovered/Not Resolved]
  - Musculoskeletal stiffness [Not Recovered/Not Resolved]
  - Diarrhoea [Recovered/Resolved]
  - Gait disturbance [Recovering/Resolving]
  - Insomnia [Unknown]
